FAERS Safety Report 20582884 (Version 1)
Quarter: 2022Q1

REPORT INFORMATION
  Report Type: Spontaneous
  Country: US (occurrence: US)
  Receive Date: 20220311
  Receipt Date: 20220311
  Transmission Date: 20220423
  Serious: No
  Sender: FDA-Public Use
  Company Number: US-BIOGEN-2022BI01103686

PATIENT
  Age: 75 Year
  Sex: Female

DRUGS (1)
  1. ADUHELM [Suspect]
     Active Substance: ADUCANUMAB-AVWA
     Indication: Product used for unknown indication
     Route: 065
     Dates: start: 20220202

REACTIONS (2)
  - Aggression [Unknown]
  - Scratch [Unknown]

NARRATIVE: CASE EVENT DATE: 20220202
